FAERS Safety Report 8341852-2 (Version None)
Quarter: 2012Q2

REPORT INFORMATION
  Report Type: 
  Country: None (occurrence: None)
  Receive Date: 20120507
  Receipt Date: 20120420
  Transmission Date: 20120825
  Serious: No
  Sender: FDA-Public Use
  Company Number: US-ROXANE LABORATORIES, INC.-2012-RO-01099RO

PATIENT
  Sex: Male

DRUGS (4)
  1. KLONOPIN [Concomitant]
  2. OXCARBAZEPINE [Suspect]
     Indication: CONVULSION
     Dosage: 1800 MG
     Route: 048
     Dates: end: 20120419
  3. KEPPRA [Concomitant]
  4. TEGRETOL [Concomitant]

REACTIONS (4)
  - HEADACHE [None]
  - MALAISE [None]
  - NAUSEA [None]
  - FATIGUE [None]
